FAERS Safety Report 8177527-2 (Version None)
Quarter: 2012Q1

REPORT INFORMATION
  Report Type: 
  Country: None (occurrence: None)
  Receive Date: 20120301
  Receipt Date: 20120220
  Transmission Date: 20120608
  Serious: Yes (Hospitalization)
  Sender: FDA-Public Use
  Company Number: US-PERRIGO-12US001490

PATIENT
  Sex: Male
  Weight: 56.689 kg

DRUGS (3)
  1. ANTIBIOTICS [Concomitant]
     Indication: KIDNEY INFECTION
     Dosage: UNK
     Route: 042
     Dates: start: 20101220, end: 20101226
  2. ACETAMINOPHEN [Suspect]
     Indication: BACK PAIN
     Dosage: 1000 MG, SINGLE
     Route: 048
     Dates: start: 20101219, end: 20101219
  3. BACTRIM [Concomitant]
     Indication: KIDNEY INFECTION
     Dosage: UNK
     Route: 065
     Dates: start: 20101219

REACTIONS (3)
  - URINARY TRACT INFLAMMATION [None]
  - RENAL FAILURE [None]
  - BLOOD CREATININE INCREASED [None]
